FAERS Safety Report 10210353 (Version 1)
Quarter: 2014Q2

REPORT INFORMATION
  Report Type: Spontaneous
  Country: BR (occurrence: None)
  Receive Date: 20140528
  Receipt Date: 20140528
  Transmission Date: 20141212
  Serious: Yes (Hospitalization)
  Sender: FDA-Public Use
  Company Number: B0995671A

PATIENT
  Age: 30 Year
  Sex: Female

DRUGS (3)
  1. ZIDOVUDINE [Suspect]
     Indication: ANTIRETROVIRAL THERAPY
     Dosage: 10- UNKNOWN
  2. LAMIVUDINE [Suspect]
     Indication: ANTIRETROVIRAL THERAPY
  3. EFAVIRENZ [Suspect]
     Indication: ANTIRETROVIRAL THERAPY

REACTIONS (9)
  - Hydrocephalus [None]
  - Headache [None]
  - Ataxia [None]
  - Bradyphrenia [None]
  - Vomiting [None]
  - Phonophobia [None]
  - Photophobia [None]
  - Paraesthesia [None]
  - Procedural haemorrhage [None]
